FAERS Safety Report 6398343-8 (Version None)
Quarter: 2009Q4

REPORT INFORMATION
  Report Type: 
  Country: None (occurrence: None)
  Receive Date: 20091007
  Receipt Date: 20090922
  Transmission Date: 20100525
  Serious: Yes (Life-Threatening)
  Sender: FDA-Public Use
  Company Number: AUR-APL-2009-00705

PATIENT
  Age: 9 Year
  Sex: Male
  Weight: 30.6 kg

DRUGS (5)
  1. CEFUROXIME INJECTABLE [Suspect]
     Indication: APPENDICITIS
     Dosage: 250MG - IV
     Route: 042
     Dates: start: 20090824
  2. METRONIDAZOLE [Suspect]
     Indication: APPENDICITIS
     Dosage: 200MG - IV
     Route: 042
     Dates: start: 20090824
  3. IBUPROFEN [Concomitant]
  4. CHLORPHENIRAMINE MALEATE [Concomitant]
  5. PARACETAMOL [Concomitant]

REACTIONS (3)
  - PHARYNGEAL OEDEMA [None]
  - SWELLING FACE [None]
  - THROAT TIGHTNESS [None]
